FAERS Safety Report 25867197 (Version 1)
Quarter: 2025Q4

REPORT INFORMATION
  Report Type: Spontaneous
  Country: US (occurrence: None)
  Receive Date: 20251001
  Receipt Date: 20251001
  Transmission Date: 20260117
  Serious: Yes (Hospitalization)
  Sender: ENDO
  Company Number: US-ENDO USA, INC.-2025-002013

PATIENT
  Age: 37 Year
  Sex: Female

DRUGS (1)
  1. TRIENTINE HYDROCHLORIDE [Suspect]
     Active Substance: TRIENTINE HYDROCHLORIDE
     Indication: Chelation therapy
     Dosage: UNK UNKNOWN, UNKNOWN
     Route: 065

REACTIONS (1)
  - Enteritis [Recovered/Resolved]
